FAERS Safety Report 10243857 (Version 3)
Quarter: 2016Q1

REPORT INFORMATION
  Report Type: Report from Study
  Country: IT (occurrence: IT)
  Receive Date: 20140618
  Receipt Date: 20160308
  Transmission Date: 20160525
  Serious: Yes (Death, Life-Threatening, Hospitalization, Disabling)
  Sender: FDA-Public Use
  Company Number: IT-SA-CLOF-1001391

PATIENT
  Age: 5 Year
  Sex: Female
  Weight: 23.4 kg

DRUGS (3)
  1. ETOPOSIDE. [Suspect]
     Active Substance: ETOPOSIDE
     Indication: ACUTE LYMPHOCYTIC LEUKAEMIA
     Dosage: 80 MG, QD
     Route: 042
     Dates: start: 20101125, end: 20101126
  2. EVOLTRA [Suspect]
     Active Substance: CLOFARABINE
     Indication: ACUTE LYMPHOCYTIC LEUKAEMIA
     Dosage: 30 MG, ONCE
     Route: 042
     Dates: start: 20101125, end: 20101126
  3. CYCLOPHOSPHAMIDE. [Suspect]
     Active Substance: CYCLOPHOSPHAMIDE
     Indication: ACUTE LYMPHOCYTIC LEUKAEMIA
     Dosage: 365 MG, QD
     Route: 042
     Dates: start: 20101125, end: 20101126

REACTIONS (5)
  - Renal failure [Not Recovered/Not Resolved]
  - Cardiomyopathy [Recovered/Resolved]
  - Left ventricular dysfunction [Recovered/Resolved]
  - Fungal infection [Fatal]
  - Acute pulmonary oedema [Recovered/Resolved]

NARRATIVE: CASE EVENT DATE: 20101127
